FAERS Safety Report 6681384-0 (Version None)
Quarter: 2010Q2

REPORT INFORMATION
  Report Type: 
  Country: None (occurrence: None)
  Receive Date: 20100414
  Receipt Date: 20100408
  Transmission Date: 20101027
  Serious: Yes (Death, Congenital Anomaly)
  Sender: FDA-Public Use
  Company Number: A0854829A

PATIENT
  Sex: Male
  Weight: 6 kg

DRUGS (1)
  1. SERETIDE [Suspect]
     Indication: ASTHMA
     Dates: start: 20050101

REACTIONS (7)
  - CARDIAC ARREST [None]
  - DEATH [None]
  - DILATATION VENTRICULAR [None]
  - DRUG EXPOSURE DURING PREGNANCY [None]
  - HEAD DEFORMITY [None]
  - PREMATURE BABY [None]
  - SPINE MALFORMATION [None]
